FAERS Safety Report 9695837 (Version 2)
Quarter: 2013Q4

REPORT INFORMATION
  Report Type: Spontaneous
  Country: US (occurrence: US)
  Receive Date: 20131119
  Receipt Date: 20131122
  Transmission Date: 20140711
  Serious: Yes (Other)
  Sender: FDA-Public Use
  Company Number: US-ASTRAZENECA-2013SE83387

PATIENT
  Age: 73 Year
  Sex: Male
  Weight: 52.6 kg

DRUGS (4)
  1. ANASTROZOLE [Suspect]
     Indication: BREAST CANCER MALE
     Route: 048
     Dates: start: 201308, end: 20131012
  2. ANASTROZOLE [Suspect]
     Indication: INVASIVE DUCTAL BREAST CARCINOMA
     Route: 048
     Dates: start: 201308, end: 20131012
  3. TAMOXIFEN [Suspect]
     Route: 048
  4. COUMADIN [Concomitant]
     Indication: DEEP VEIN THROMBOSIS
     Route: 048

REACTIONS (5)
  - Prostate cancer [Unknown]
  - Metastases to lung [Unknown]
  - Deep vein thrombosis [Unknown]
  - Metastases to bone [Unknown]
  - Off label use [Unknown]
